FAERS Safety Report 7605826-9 (Version None)
Quarter: 2011Q3

REPORT INFORMATION
  Report Type: 
  Country: None (occurrence: None)
  Receive Date: 20110713
  Receipt Date: 20110620
  Transmission Date: 20111222
  Serious: Yes (Hospitalization, Other)
  Sender: FDA-Public Use
  Company Number: US-BAYER-201039259NA

PATIENT
  Age: 25 Year
  Sex: Female
  Weight: 53.515 kg

DRUGS (5)
  1. YAZ [Suspect]
     Dosage: UNK UNK, QD
     Route: 048
     Dates: start: 20080107, end: 20100201
  2. IBUPROFEN [Concomitant]
     Indication: HEADACHE
     Dosage: UNK UNK, UNK
     Dates: start: 20060908
  3. CONTRACEPTIVES NOS [Concomitant]
     Route: 048
  4. YASMIN [Suspect]
     Indication: CONTRACEPTION
     Dosage: UNK
     Dates: start: 20040101, end: 20050101
  5. YAZ [Suspect]
     Indication: CONTRACEPTION
     Dosage: UNK UNK, QD
     Route: 048
     Dates: start: 20060725, end: 20060908

REACTIONS (3)
  - MIGRAINE [None]
  - CEREBROVASCULAR ACCIDENT [None]
  - TRANSIENT ISCHAEMIC ATTACK [None]
